FAERS Safety Report 23047961 (Version 1)
Quarter: 2023Q4

REPORT INFORMATION
  Report Type: Spontaneous
  Country: US (occurrence: US)
  Receive Date: 20231010
  Receipt Date: 20231010
  Transmission Date: 20240110
  Serious: No
  Sender: FDA-Public Use
  Company Number: US-AMGEN-USASP2023176187

PATIENT

DRUGS (1)
  1. PROLIA [Suspect]
     Active Substance: DENOSUMAB
     Indication: Osteoporosis
     Dosage: UNK
     Route: 065
     Dates: start: 201906

REACTIONS (9)
  - Paraesthesia oral [Unknown]
  - Gingival swelling [Unknown]
  - Gingival discolouration [Unknown]
  - Chills [Unknown]
  - Eye irritation [Unknown]
  - Blood urine present [Unknown]
  - Heart rate increased [Unknown]
  - Dry eye [Unknown]
  - Pruritus [Unknown]
